FAERS Safety Report 10505632 (Version 1)
Quarter: 2014Q4

REPORT INFORMATION
  Report Type: Spontaneous
  Country: FR (occurrence: FR)
  Receive Date: 20141008
  Receipt Date: 20141008
  Transmission Date: 20150528
  Serious: Yes (Hospitalization, Other)
  Sender: FDA-Public Use
  Company Number: FR-PFIZER INC-2014275241

PATIENT
  Age: 48 Year
  Sex: Male

DRUGS (3)
  1. VANCOMYCINE [Concomitant]
     Active Substance: VANCOMYCIN
     Dosage: 2 G, DAILY
     Dates: start: 20131116, end: 20131120
  2. CICLOSPORIN [Suspect]
     Active Substance: CYCLOSPORINE
     Indication: PROPHYLAXIS
     Dosage: UNK
     Route: 042
     Dates: start: 20131106, end: 201312
  3. CORDARONE [Suspect]
     Active Substance: AMIODARONE HYDROCHLORIDE
     Indication: ATRIAL FIBRILLATION
     Dosage: UNK
     Route: 065
     Dates: start: 20131115, end: 20131118

REACTIONS (6)
  - Renal impairment [Unknown]
  - Alanine aminotransferase increased [Recovered/Resolved]
  - Hyperbilirubinaemia [Recovered/Resolved]
  - Gamma-glutamyltransferase increased [Recovered/Resolved]
  - Drug ineffective [Unknown]
  - Pleural effusion [Unknown]

NARRATIVE: CASE EVENT DATE: 20131117
